FAERS Safety Report 4699037-7 (Version None)
Quarter: 2005Q2

REPORT INFORMATION
  Report Type: 
  Country: None (occurrence: None)
  Receive Date: 20050623
  Receipt Date: 20050623
  Transmission Date: 20051028
  Serious: No
  Sender: FDA-Public Use
  Company Number: None

PATIENT
  Sex: Male
  Weight: 83.9154 kg

DRUGS (2)
  1. VICODIN [Suspect]
     Indication: HERNIA REPAIR
     Dosage: 1 TO 2    4 TO 6 HRS    ORAL
     Route: 048
     Dates: start: 20050617, end: 20050619
  2. VICODIN [Suspect]
     Indication: POST PROCEDURAL PAIN
     Dosage: 1 TO 2    4 TO 6 HRS    ORAL
     Route: 048
     Dates: start: 20050617, end: 20050619

REACTIONS (5)
  - ARTHRALGIA [None]
  - ARTHROPATHY [None]
  - DRY THROAT [None]
  - JOINT CREPITATION [None]
  - NASAL DRYNESS [None]
